FAERS Safety Report 6152780-5 (Version None)
Quarter: 2009Q2

REPORT INFORMATION
  Report Type: 
  Country: None (occurrence: None)
  Receive Date: 20090409
  Receipt Date: 20090326
  Transmission Date: 20091009
  Serious: Yes (Other)
  Sender: FDA-Public Use
  Company Number: 2009-193902-NL

PATIENT
  Sex: Female
  Weight: 95.25 kg

DRUGS (1)
  1. PREGNYL [Suspect]
     Dosage: INJECTION

REACTIONS (1)
  - MACULAR OEDEMA [None]
